FAERS Safety Report 7265176-X (Version None)
Quarter: 2011Q1

REPORT INFORMATION
  Report Type: 
  Country: None (occurrence: None)
  Receive Date: 20110131
  Receipt Date: 20110125
  Transmission Date: 20110831
  Serious: Yes (Death, Hospitalization)
  Sender: FDA-Public Use
  Company Number: PHHY2011ZA05880

PATIENT
  Sex: Male
  Weight: 51 kg

DRUGS (3)
  1. DOXORUBICIN [Concomitant]
     Dosage: UNK
  2. GLEEVEC [Suspect]
     Indication: CHRONIC MYELOID LEUKAEMIA
     Dosage: 400 MG, UNK
     Route: 048
  3. CYTOSAR-U [Concomitant]
     Dosage: UNK

REACTIONS (2)
  - DEATH [None]
  - CHRONIC MYELOID LEUKAEMIA TRANSFORMATION [None]
